FAERS Safety Report 24464501 (Version 1)
Quarter: 2024Q4

REPORT INFORMATION
  Report Type: Spontaneous
  Country: US (occurrence: US)
  Receive Date: 20241018
  Receipt Date: 20241018
  Transmission Date: 20250115
  Serious: No
  Sender: ROCHE
  Company Number: US-ROCHE-3491822

PATIENT
  Sex: Female
  Weight: 65.77 kg

DRUGS (5)
  1. XOLAIR [Suspect]
     Active Substance: OMALIZUMAB
     Indication: Urticaria
     Route: 058
     Dates: start: 2023
  2. XOLAIR [Suspect]
     Active Substance: OMALIZUMAB
  3. HYDROXYZINE [Concomitant]
     Active Substance: HYDROXYZINE HYDROCHLORIDE
     Indication: Urticaria
     Route: 048
     Dates: start: 2022
  4. PANTOPRAZOLE [Concomitant]
     Active Substance: PANTOPRAZOLE
     Indication: Gastrooesophageal reflux disease
     Dosage: AS NEEDED
     Route: 048
     Dates: start: 2020
  5. SLYND [Concomitant]
     Active Substance: DROSPIRENONE
     Route: 048
     Dates: start: 202312

REACTIONS (6)
  - Accidental underdose [Unknown]
  - Accidental exposure to product [Unknown]
  - Urticaria [Unknown]
  - Gastrooesophageal reflux disease [Unknown]
  - Syringe issue [Unknown]
  - Product quality issue [Unknown]

NARRATIVE: CASE EVENT DATE: 20230111
